FAERS Safety Report 14069143 (Version 1)
Quarter: 2017Q4

REPORT INFORMATION
  Report Type: Spontaneous
  Country: CN (occurrence: CN)
  Receive Date: 20171010
  Receipt Date: 20171010
  Transmission Date: 20180321
  Serious: Yes (Other)
  Sender: FDA-Public Use
  Company Number: CN-BAYER-2017-187268

PATIENT
  Age: 81 Year
  Sex: Female
  Weight: 58 kg

DRUGS (1)
  1. GLUCOBAY [Suspect]
     Active Substance: ACARBOSE
     Indication: DIABETES MELLITUS
     Dosage: 50 MG, TID
     Route: 048
     Dates: start: 20170715, end: 20170730

REACTIONS (1)
  - Hypoglycaemia [Recovering/Resolving]

NARRATIVE: CASE EVENT DATE: 20170730
